FAERS Safety Report 13424797 (Version 3)
Quarter: 2017Q4

REPORT INFORMATION
  Report Type: Report from Study
  Country: US (occurrence: US)
  Receive Date: 20170410
  Receipt Date: 20171212
  Transmission Date: 20180320
  Serious: Yes (Hospitalization)
  Sender: FDA-Public Use
  Company Number: US-ACTELION-A-US2016-142805

PATIENT
  Age: 68 Year
  Sex: Female

DRUGS (14)
  1. SIMVASTATIN. [Concomitant]
     Active Substance: SIMVASTATIN
     Dosage: 20 MG, UNK
  2. DALIRESP [Concomitant]
     Active Substance: ROFLUMILAST
     Dosage: 500 UNK, UNK
  3. SYMBICORT [Concomitant]
     Active Substance: BUDESONIDE\FORMOTEROL FUMARATE DIHYDRATE
     Dosage: 160/4.5
  4. SERTRALINE [Concomitant]
     Active Substance: SERTRALINE HYDROCHLORIDE
  5. COLESTIPOL [Concomitant]
     Active Substance: COLESTIPOL
  6. ZOLPIDEM [Concomitant]
     Active Substance: ZOLPIDEM\ZOLPIDEM TARTRATE
     Dosage: 10 MG, UNK
  7. SPIRIVA [Concomitant]
     Active Substance: TIOTROPIUM BROMIDE MONOHYDRATE
  8. TRACLEER [Suspect]
     Active Substance: BOSENTAN
     Indication: PULMONARY ARTERIAL HYPERTENSION
     Dosage: 125 MG, BID
     Route: 048
     Dates: start: 20100209
  9. COUMADIN [Concomitant]
     Active Substance: WARFARIN SODIUM
     Dosage: 7.5 MG, UNK
  10. METOPROLOL. [Concomitant]
     Active Substance: METOPROLOL
     Dosage: 100 MG, UNK
  11. POTASSIUM CHLORIDE. [Concomitant]
     Active Substance: POTASSIUM CHLORIDE
  12. CELEBREX [Concomitant]
     Active Substance: CELECOXIB
     Dosage: 200 MG, UNK
  13. CELECOXIB. [Concomitant]
     Active Substance: CELECOXIB
  14. LASIX [Concomitant]
     Active Substance: FUROSEMIDE
     Dosage: 40 MG, UNK

REACTIONS (4)
  - Memory impairment [Unknown]
  - Drug dose omission [Unknown]
  - Nasopharyngitis [Unknown]
  - Atrial fibrillation [Not Recovered/Not Resolved]

NARRATIVE: CASE EVENT DATE: 20161212
